FAERS Safety Report 8445164-8 (Version None)
Quarter: 2012Q2

REPORT INFORMATION
  Report Type: 
  Country: None (occurrence: None)
  Receive Date: 20120618
  Receipt Date: 20120607
  Transmission Date: 20120825
  Serious: Yes (Other)
  Sender: FDA-Public Use
  Company Number: US-JNJFOC-20120605851

PATIENT
  Age: 49 Year
  Sex: Male

DRUGS (8)
  1. ELIGARD [Concomitant]
  2. ZYTIGA [Suspect]
     Indication: PROSTATE CANCER
     Route: 048
     Dates: start: 20111201
  3. HALDOL [Suspect]
     Indication: PRODUCT USED FOR UNKNOWN INDICATION
     Route: 065
  4. MORPHINE [Concomitant]
     Indication: PAIN
     Route: 065
  5. XGEVA [Concomitant]
  6. EFFEXOR XR [Concomitant]
  7. PREDNISONE [Concomitant]
  8. MIRALAX [Concomitant]

REACTIONS (3)
  - CONFUSIONAL STATE [None]
  - OEDEMA PERIPHERAL [None]
  - SCROTAL SWELLING [None]
